FAERS Safety Report 7806876-X (Version None)
Quarter: 2011Q4

REPORT INFORMATION
  Report Type: 
  Country: None (occurrence: None)
  Receive Date: 20111011
  Receipt Date: 20111010
  Transmission Date: 20120403
  Serious: Yes (Hospitalization)
  Sender: FDA-Public Use
  Company Number: GB-ROCHE-516292

PATIENT
  Sex: Male
  Weight: 80 kg

DRUGS (3)
  1. XELODA [Suspect]
     Dosage: DOSAGE WAS REDUCED
     Route: 048
  2. AVASTIN [Suspect]
     Indication: COLON CANCER
     Route: 042
     Dates: start: 20060914, end: 20070816
  3. XELODA [Suspect]
     Indication: COLON CANCER
     Dosage: DOSAGE REDUCED TO 2 X 25% REDUCTION
     Route: 048

REACTIONS (1)
  - INFECTIOUS PERITONITIS [None]
